FAERS Safety Report 14296949 (Version 1)
Quarter: 2017Q4

REPORT INFORMATION
  Report Type: Spontaneous
  Country: US (occurrence: US)
  Receive Date: 20171218
  Receipt Date: 20171218
  Transmission Date: 20180321
  Serious: Yes (Other)
  Sender: FDA-Public Use
  Company Number: US-PFIZER INC-2017533433

PATIENT
  Sex: Female

DRUGS (1)
  1. PREMARIN [Suspect]
     Active Substance: ESTROGENS, CONJUGATED
     Indication: VULVOVAGINAL DRYNESS
     Dosage: UNK, (APPLY PEA SIZED AMOUNT TO VAGINAL OPENING 3-4 TIMES A WEEK)
     Route: 067
     Dates: start: 1991

REACTIONS (3)
  - Streptococcal urinary tract infection [Not Recovered/Not Resolved]
  - Fungal infection [Unknown]
  - Urinary tract infection staphylococcal [Not Recovered/Not Resolved]
